FAERS Safety Report 5262224-3 (Version None)
Quarter: 2007Q1

REPORT INFORMATION
  Report Type: 
  Country: None (occurrence: None)
  Receive Date: 20070308
  Receipt Date: 20070221
  Transmission Date: 20070707
  Serious: Yes (Death)
  Sender: FDA-Public Use
  Company Number: US019505

PATIENT
  Sex: Male
  Weight: 76 kg

DRUGS (1)
  1. ARSENIC TRIOXIDE [Suspect]

REACTIONS (12)
  - ABDOMINAL PAIN UPPER [None]
  - BLOOD ARSENIC INCREASED [None]
  - BRAIN OEDEMA [None]
  - CIRCULATORY COLLAPSE [None]
  - GASTRIC HAEMORRHAGE [None]
  - HEPATOMEGALY [None]
  - MUCOSAL HAEMORRHAGE [None]
  - MYOCARDIAL HAEMORRHAGE [None]
  - NAUSEA [None]
  - OCCUPATIONAL EXPOSURE TO TOXIC AGENT [None]
  - POISONING [None]
  - VOMITING [None]
